FAERS Safety Report 15313162 (Version 3)
Quarter: 2018Q3

REPORT INFORMATION
  Report Type: Spontaneous
  Country: DE (occurrence: DE)
  Receive Date: 20180823
  Receipt Date: 20180924
  Transmission Date: 20181010
  Serious: Yes (Hospitalization, Other)
  Sender: FDA-Public Use
  Company Number: DE-B.I. PHARMACEUTICALS,INC./RIDGEFIELD-2018-BI-041827

PATIENT
  Age: 54 Year
  Sex: Female
  Weight: 60 kg

DRUGS (8)
  1. GILOTRIF [Suspect]
     Active Substance: AFATINIB
     Indication: EGFR GENE MUTATION
     Route: 048
  2. GILOTRIF [Suspect]
     Active Substance: AFATINIB
     Route: 048
  3. DEXAMETHASON [Concomitant]
     Active Substance: DEXAMETHASONE
     Indication: PRODUCT USED FOR UNKNOWN INDICATION
     Route: 065
  4. GILOTRIF [Suspect]
     Active Substance: AFATINIB
     Route: 048
  5. GILOTRIF [Suspect]
     Active Substance: AFATINIB
     Indication: NON-SMALL CELL LUNG CANCER
     Route: 048
     Dates: start: 201705
  6. GILOTRIF [Suspect]
     Active Substance: AFATINIB
     Route: 048
  7. GILOTRIF [Suspect]
     Active Substance: AFATINIB
     Route: 048
  8. GILOTRIF [Suspect]
     Active Substance: AFATINIB
     Route: 048

REACTIONS (15)
  - Osteonecrosis [Unknown]
  - Neuropathy peripheral [Unknown]
  - Metastasis [Unknown]
  - Skin toxicity [Unknown]
  - Arthralgia [Unknown]
  - Malignant neoplasm progression [Unknown]
  - Metastases to central nervous system [Unknown]
  - Mucosal inflammation [Unknown]
  - Spinal pain [Unknown]
  - Brain oedema [Unknown]
  - Dermatitis [Unknown]
  - Skin toxicity [Unknown]
  - Metastases to meninges [Unknown]
  - Nervous system disorder [Unknown]
  - Pain [Unknown]

NARRATIVE: CASE EVENT DATE: 201709
